FAERS Safety Report 5885987-2 (Version None)
Quarter: 2008Q3

REPORT INFORMATION
  Report Type: 
  Country: None (occurrence: None)
  Receive Date: 20080917
  Receipt Date: 20080905
  Transmission Date: 20090109
  Serious: Yes (Other)
  Sender: FDA-Public Use
  Company Number: DE-ELI_LILLY_AND_COMPANY-DE200809001485

PATIENT
  Sex: Female

DRUGS (3)
  1. PEMETREXED [Suspect]
     Indication: BRONCHIAL CARCINOMA
     Dates: start: 20071112
  2. CISPLATIN [Suspect]
     Indication: BRONCHIAL CARCINOMA
     Dates: start: 20071112
  3. ERLOTINIB [Concomitant]
     Indication: BRONCHIAL CARCINOMA
     Dates: end: 20080520

REACTIONS (1)
  - DENTAL CARIES [None]
